FAERS Safety Report 13623252 (Version 2)
Quarter: 2017Q3

REPORT INFORMATION
  Report Type: Spontaneous
  Country: US (occurrence: US)
  Receive Date: 20170608
  Receipt Date: 20170703
  Transmission Date: 20171127
  Serious: No
  Sender: FDA-Public Use
  Company Number: US-B.I. PHARMACEUTICALS,INC./RIDGEFIELD-2017-BI-030945

PATIENT
  Age: 70 Year
  Sex: Female

DRUGS (4)
  1. SINGULAIR [Concomitant]
     Active Substance: MONTELUKAST SODIUM
     Indication: TRACHEAL MASS
     Dosage: QD;  FORM STRENGTH: 10MG
     Route: 048
     Dates: start: 2015
  2. SPIRIVA [Suspect]
     Active Substance: TIOTROPIUM BROMIDE MONOHYDRATE
     Indication: TRACHEAL MASS
     Dosage: 2 INHALATIONS AT THE SAME TIME QD;  FORM STRENGTH: 2.5 MCG; FORMULATION: INHALATION SPRAY? ADMINISTR
     Route: 055
     Dates: start: 201701
  3. XOPENEX INHALER [Concomitant]
     Indication: TRACHEAL MASS
     Dosage: AS NEEDED;
     Route: 055
     Dates: start: 2012
  4. ALLEGRA [Concomitant]
     Active Substance: FEXOFENADINE HYDROCHLORIDE
     Indication: TRACHEAL MASS
     Dosage: QD;  FORM STRENGTH: 180MG
     Route: 048
     Dates: start: 201704

REACTIONS (3)
  - Off label use [Unknown]
  - Dyspnoea [Not Recovered/Not Resolved]
  - Product quality issue [Unknown]

NARRATIVE: CASE EVENT DATE: 201705
